FAERS Safety Report 6806120-6 (Version None)
Quarter: 2010Q2

REPORT INFORMATION
  Report Type: 
  Country: None (occurrence: None)
  Receive Date: 20100629
  Receipt Date: 20080428
  Transmission Date: 20101027
  Serious: Yes (Other)
  Sender: FDA-Public Use
  Company Number: US-PFIZER INC-2008000178

PATIENT
  Age: 59 Year
  Sex: Male

DRUGS (3)
  1. VIAGRA [Suspect]
     Indication: ERECTILE DYSFUNCTION
  2. CIALIS [Suspect]
     Indication: ERECTILE DYSFUNCTION
  3. LEVITRA [Suspect]
     Indication: ERECTILE DYSFUNCTION

REACTIONS (2)
  - DRUG INEFFECTIVE [None]
  - TYPE 2 DIABETES MELLITUS [None]
